FAERS Safety Report 15059755 (Version 1)
Quarter: 2018Q2

REPORT INFORMATION
  Report Type: Spontaneous
  Country: US (occurrence: US)
  Receive Date: 20180625
  Receipt Date: 20180625
  Transmission Date: 20180711
  Serious: Yes (Other)
  Sender: FDA-Public Use
  Company Number: US-SA-2018SA098714

PATIENT
  Age: 60 Year
  Sex: Female
  Weight: 117 kg

DRUGS (21)
  1. TAXOTERE [Suspect]
     Active Substance: DOCETAXEL
     Dosage: UNK UNK,UNK
     Route: 042
     Dates: start: 20160708, end: 20160708
  2. DIPHENHYDRAMINE HYDROCHLORIDE;LIDOCAINE [Concomitant]
  3. NORCO [Concomitant]
     Active Substance: ACETAMINOPHEN\HYDROCODONE BITARTRATE
  4. TAXOTERE [Suspect]
     Active Substance: DOCETAXEL
     Dosage: UNK UNK,UNK
     Route: 042
     Dates: start: 20160729, end: 20160729
  5. COMPAZINE [Concomitant]
     Active Substance: PROCHLORPERAZINE MALEATE
  6. ATIVAN [Concomitant]
     Active Substance: LORAZEPAM
  7. PEPCID [FAMOTIDINE] [Concomitant]
  8. PARAPLATIN [Concomitant]
     Active Substance: CARBOPLATIN
  9. PRAVASTATIN. [Concomitant]
     Active Substance: PRAVASTATIN
  10. NEULASTA [Concomitant]
     Active Substance: PEGFILGRASTIM
  11. TAXOTERE [Suspect]
     Active Substance: DOCETAXEL
     Dosage: UNK UNK,UNK
     Route: 042
     Dates: start: 20160914, end: 20160914
  12. LOMOTIL [ATROPINE SULFATE;DIPHENOXYLATE HYDROCHLORIDE] [Concomitant]
  13. TAXOTERE [Suspect]
     Active Substance: DOCETAXEL
     Dosage: 80 MG, Q3W
     Route: 042
     Dates: start: 20160909, end: 20160909
  14. HERCEPTIN [Concomitant]
     Active Substance: TRASTUZUMAB
  15. LISINOPRIL. [Concomitant]
     Active Substance: LISINOPRIL
  16. TAXOTERE [Suspect]
     Active Substance: DOCETAXEL
     Indication: BREAST CANCER FEMALE
     Dosage: 80 MG, Q3W
     Route: 042
     Dates: start: 20160527, end: 20160527
  17. DECADRON [Concomitant]
     Active Substance: DEXAMETHASONE
  18. DOCETAXEL. [Concomitant]
     Active Substance: DOCETAXEL
  19. ONDANSETRON [Concomitant]
     Active Substance: ONDANSETRON
  20. DOK [Concomitant]
     Active Substance: DOCUSATE SODIUM
  21. ZARXIO [Concomitant]
     Active Substance: FILGRASTIM-SNDZ

REACTIONS (2)
  - Alopecia [Recovering/Resolving]
  - Psychological trauma [Unknown]

NARRATIVE: CASE EVENT DATE: 2016
